FAERS Safety Report 6388159-0 (Version None)
Quarter: 2009Q4

REPORT INFORMATION
  Report Type: 
  Country: None (occurrence: None)
  Receive Date: 20091005
  Receipt Date: 20090929
  Transmission Date: 20100525
  Serious: Yes (Other)
  Sender: FDA-Public Use
  Company Number: US-BAYER-200914170BCC

PATIENT
  Age: 28 Year
  Sex: Male
  Weight: 95 kg

DRUGS (1)
  1. ALEVE (CAPLET) [Suspect]
     Indication: BACK PAIN
     Dosage: TOTAL DAILY DOSE: 440 MG  UNIT DOSE: 220 MG
     Route: 048
     Dates: start: 20090911, end: 20090911

REACTIONS (22)
  - BLINDNESS [None]
  - BLOOD PRESSURE DECREASED [None]
  - DIARRHOEA [None]
  - DYSARTHRIA [None]
  - DYSGEUSIA [None]
  - ERYTHEMA [None]
  - FALL [None]
  - FOAMING AT MOUTH [None]
  - HEART RATE DECREASED [None]
  - HYPERSENSITIVITY [None]
  - LIP SWELLING [None]
  - OCULAR HYPERAEMIA [None]
  - PALLOR [None]
  - PHARYNGEAL OEDEMA [None]
  - PRURITUS [None]
  - RASH MACULAR [None]
  - SALIVARY HYPERSECRETION [None]
  - SWELLING FACE [None]
  - TREMOR [None]
  - TUNNEL VISION [None]
  - URTICARIA [None]
  - VOMITING [None]
